FAERS Safety Report 15408978 (Version 5)
Quarter: 2018Q4

REPORT INFORMATION
  Report Type: Spontaneous
  Country: JP (occurrence: JP)
  Receive Date: 20180920
  Receipt Date: 20181129
  Transmission Date: 20190204
  Serious: Yes (Hospitalization)
  Sender: FDA-Public Use
  Company Number: JP-ABBVIE-18K-087-2491383-00

PATIENT
  Age: 40 Year
  Sex: Female
  Weight: 59.8 kg

DRUGS (19)
  1. CLOBETASOL PROPIONATE. [Concomitant]
     Active Substance: CLOBETASOL PROPIONATE
     Indication: ECZEMA
     Route: 050
     Dates: start: 20171206
  2. FUROSEMIDE. [Concomitant]
     Active Substance: FUROSEMIDE
     Indication: PRODUCT USED FOR UNKNOWN INDICATION
     Dates: start: 20181009
  3. CARVEDILOL. [Concomitant]
     Active Substance: CARVEDILOL
     Indication: PRODUCT USED FOR UNKNOWN INDICATION
     Dates: start: 20181011
  4. TAZOBACTAM SODIUM AND PIPERACILLIN SODIUM [Concomitant]
     Active Substance: PIPERACILLIN SODIUM\TAZOBACTAM SODIUM
     Indication: PRODUCT USED FOR UNKNOWN INDICATION
     Dates: start: 20180912, end: 20181014
  5. CEFEPIME DIHYDROCHLORIDE [Concomitant]
     Active Substance: CEFEPIME HYDROCHLORIDE
     Indication: PRODUCT USED FOR UNKNOWN INDICATION
     Dates: start: 20180914, end: 20180925
  6. METRONIDAZOLE. [Concomitant]
     Active Substance: METRONIDAZOLE
     Indication: PRODUCT USED FOR UNKNOWN INDICATION
     Route: 048
     Dates: start: 20180914, end: 20180925
  7. SPIRONOLACTONE. [Concomitant]
     Active Substance: SPIRONOLACTONE
     Indication: PRODUCT USED FOR UNKNOWN INDICATION
     Dates: start: 20181011
  8. HUMIRA [Suspect]
     Active Substance: ADALIMUMAB
     Indication: CROHN^S DISEASE
     Route: 058
     Dates: start: 20150618, end: 20150618
  9. MESALAMINE. [Concomitant]
     Active Substance: MESALAMINE
     Indication: CROHN^S DISEASE
     Route: 048
     Dates: start: 20081010, end: 20151203
  10. LEVOFLOXACIN HEMIHYDRATE [Concomitant]
     Active Substance: LEVOFLOXACIN
     Indication: URINARY TRACT INFECTION
     Route: 048
     Dates: start: 20180829, end: 20180902
  11. ENALAPRIL MALEATE. [Concomitant]
     Active Substance: ENALAPRIL MALEATE
     Indication: PRODUCT USED FOR UNKNOWN INDICATION
     Route: 048
     Dates: start: 20181009
  12. HUMIRA [Suspect]
     Active Substance: ADALIMUMAB
     Route: 058
     Dates: start: 20150716, end: 20180110
  13. HUMIRA [Suspect]
     Active Substance: ADALIMUMAB
     Route: 058
     Dates: start: 20180124
  14. CLOBETASONE BUTYRATE [Concomitant]
     Active Substance: CLOBETASONE BUTYRATE
     Indication: ECZEMA
     Route: 062
     Dates: start: 20160628
  15. CLOBETASOL PROPIONATE. [Concomitant]
     Active Substance: CLOBETASOL PROPIONATE
     Indication: ECZEMA
     Route: 062
     Dates: start: 20171206
  16. ALPROSTADIL ALFADEX [Concomitant]
     Active Substance: ALPROSTADIL ALFADEX
     Indication: ECZEMA
     Route: 062
     Dates: start: 20180829
  17. HUMIRA [Suspect]
     Active Substance: ADALIMUMAB
     Indication: GASTROINTESTINAL ULCER
     Route: 058
     Dates: start: 20150702, end: 20150702
  18. VANCOMYCIN HYDROCHLORIDE. [Concomitant]
     Active Substance: VANCOMYCIN HYDROCHLORIDE
     Indication: PRODUCT USED FOR UNKNOWN INDICATION
     Dates: start: 20180912, end: 20180914
  19. FUROSEMIDE. [Concomitant]
     Active Substance: FUROSEMIDE
     Dates: start: 20181011

REACTIONS (36)
  - Pseudomonas test positive [Unknown]
  - Pollakiuria [Unknown]
  - Headache [Unknown]
  - Cellulitis [Unknown]
  - Pain [Unknown]
  - Staphylococcal infection [Unknown]
  - Beta haemolytic streptococcal infection [Unknown]
  - Streptococcus test positive [Unknown]
  - Bacteroides test positive [Unknown]
  - Vulvovaginal rash [Unknown]
  - Infection susceptibility increased [Unknown]
  - Skin ulcer [Unknown]
  - Pyoderma [Unknown]
  - Ulcer [Unknown]
  - Pulmonary congestion [Unknown]
  - Renal impairment [Unknown]
  - Pain [Unknown]
  - Stress cardiomyopathy [Unknown]
  - Soft tissue infection [Recovered/Resolved]
  - Skin mass [Unknown]
  - Erythema [Unknown]
  - Dermatitis [Unknown]
  - Chills [Unknown]
  - Staphylococcus test positive [Unknown]
  - Impetigo [Unknown]
  - Panniculitis [Unknown]
  - Drug ineffective [Unknown]
  - Gangrene [Unknown]
  - Cellulitis [Recovering/Resolving]
  - Malaise [Unknown]
  - Bacterial infection [Unknown]
  - Urinary tract infection [Recovered/Resolved]
  - Necrotising fasciitis [Unknown]
  - Cardiac failure congestive [Recovering/Resolving]
  - Pain in extremity [Unknown]
  - Abdominal pain lower [Unknown]

NARRATIVE: CASE EVENT DATE: 2018
